FAERS Safety Report 7101747-9 (Version None)
Quarter: 2010Q4

REPORT INFORMATION
  Report Type: 
  Country: None (occurrence: None)
  Receive Date: 20101115
  Receipt Date: 20101111
  Transmission Date: 20110411
  Serious: Yes (Hospitalization)
  Sender: FDA-Public Use
  Company Number: DE-SANOFI-AVENTIS-2010SA056753

PATIENT
  Age: 83 Year
  Sex: Male

DRUGS (11)
  1. MULTAQ [Suspect]
     Indication: ATRIAL FIBRILLATION
     Route: 048
     Dates: end: 20100819
  2. ACE INHIBITORS AND DIURETICS [Concomitant]
     Dosage: 1/2-0-0
     Route: 048
  3. RAMILICH COMP [Concomitant]
     Dosage: DOSAGE: 5/25 MG1-0-0
     Route: 048
  4. SIFROL [Concomitant]
     Route: 065
  5. SIFROL [Concomitant]
     Route: 065
  6. URINARY ANTISPASMODICS [Concomitant]
     Dosage: 0-0-1
     Route: 065
  7. PROSCAR [Concomitant]
     Dosage: 0-0-1
     Route: 065
  8. TORASEMIDE [Concomitant]
     Dosage: 1/2-0-0
     Route: 048
  9. MARCUMAR [Concomitant]
     Route: 065
  10. BELOC MITE [Concomitant]
     Dosage: 1-0-1
     Route: 065
  11. ACETYLSALICYLIC ACID SRT [Concomitant]
     Dosage: 0-1-0
     Route: 065

REACTIONS (2)
  - BLOOD CREATININE INCREASED [None]
  - RENAL FAILURE [None]
